FAERS Safety Report 10745655 (Version 1)
Quarter: 2015Q1

REPORT INFORMATION
  Report Type: Report from Study
  Country: GB (occurrence: GB)
  Receive Date: 20150128
  Receipt Date: 20150128
  Transmission Date: 20150721
  Serious: Yes (Hospitalization, Other)
  Sender: FDA-Public Use
  Company Number: GB-ABBVIE-15K-167-1336215-00

PATIENT
  Age: 46 Year
  Sex: Male
  Weight: 81.8 kg

DRUGS (1)
  1. HUMIRA [Suspect]
     Active Substance: ADALIMUMAB
     Indication: PSORIASIS
     Route: 065
     Dates: start: 20120207, end: 20140513

REACTIONS (8)
  - Hepatic cirrhosis [Unknown]
  - Alcoholic liver disease [Unknown]
  - Ascites [Unknown]
  - Non-alcoholic steatohepatitis [Unknown]
  - Thrombocytopenia [Unknown]
  - Hepatic failure [Unknown]
  - Jaundice [Unknown]
  - Splenomegaly [Unknown]

NARRATIVE: CASE EVENT DATE: 20140725
